FAERS Safety Report 6518880-2 (Version None)
Quarter: 2009Q4

REPORT INFORMATION
  Report Type: 
  Country: None (occurrence: None)
  Receive Date: 20091228
  Receipt Date: 20091216
  Transmission Date: 20100525
  Serious: Yes (Other)
  Sender: FDA-Public Use
  Company Number: PHHY2009CA56249

PATIENT
  Sex: Female

DRUGS (1)
  1. DIOVAN [Suspect]
     Dosage: HALF TABLET (80 MG) DAILY
     Route: 048

REACTIONS (3)
  - HEART RATE DECREASED [None]
  - NEPHROLITHIASIS [None]
  - PAIN [None]
